FAERS Safety Report 15888332 (Version 1)
Quarter: 2019Q1

REPORT INFORMATION
  Report Type: Spontaneous
  Country: US (occurrence: US)
  Receive Date: 20190108
  Receipt Date: 20190108
  Transmission Date: 20190417
  Serious: Yes (Death, Hospitalization)
  Sender: FDA-Public Use
  Company Number: None

PATIENT
  Age: 12 Year
  Sex: Male
  Weight: 56.1 kg

DRUGS (5)
  1. VINCRISTINE SULFATE. [Suspect]
     Active Substance: VINCRISTINE SULFATE
     Dates: end: 20130403
  2. METHOTREXATE. [Suspect]
     Active Substance: METHOTREXATE
     Dates: end: 20130403
  3. CYTARABINE. [Suspect]
     Active Substance: CYTARABINE
     Dates: end: 20130403
  4. HYDROCORTISONE. [Suspect]
     Active Substance: HYDROCORTISONE
     Dates: end: 20130403
  5. MERCAPTOPURINE. [Suspect]
     Active Substance: MERCAPTOPURINE
     Dates: end: 20130403

REACTIONS (9)
  - Pyrexia [None]
  - Tachycardia [None]
  - Septic shock [None]
  - Respiratory distress [None]
  - Lactic acidosis [None]
  - Abdominal pain [None]
  - Cardio-respiratory arrest [None]
  - Pulse absent [None]
  - Febrile neutropenia [None]

NARRATIVE: CASE EVENT DATE: 20130414
